FAERS Safety Report 9818286 (Version 1)
Quarter: 2014Q1

REPORT INFORMATION
  Report Type: Spontaneous
  Country: US (occurrence: US)
  Receive Date: 20140115
  Receipt Date: 20140115
  Transmission Date: 20141002
  Serious: No
  Sender: FDA-Public Use
  Company Number: US-BAYER-2014-006581

PATIENT
  Age: 68 Year
  Sex: Male
  Weight: 76 kg

DRUGS (2)
  1. ALEVE CAPLET [Suspect]
     Indication: PAIN
     Dosage: 1 DF, BID
     Route: 048
     Dates: start: 20140109
  2. CELEBREX [Concomitant]

REACTIONS (1)
  - Drug effect delayed [None]
